FAERS Safety Report 12544672 (Version 1)
Quarter: 2016Q3

REPORT INFORMATION
  Report Type: Spontaneous
  Country: US (occurrence: US)
  Receive Date: 20160711
  Receipt Date: 20160711
  Transmission Date: 20161109
  Serious: No
  Sender: FDA-Public Use
  Company Number: US-PFIZER INC-2016338310

PATIENT
  Sex: Female

DRUGS (2)
  1. LYRICA [Suspect]
     Active Substance: PREGABALIN
     Indication: SCIATICA
     Dosage: 75 MG, 1X/DAY  (75 MG IN THE MORNING ONLY)
  2. LYRICA [Suspect]
     Active Substance: PREGABALIN
     Indication: NERVE COMPRESSION
     Dosage: 75 MG, 2X/DAY (75MG IN MORNING AND 75MG IN NIGHT)
     Dates: start: 20160623

REACTIONS (2)
  - Joint swelling [Not Recovered/Not Resolved]
  - Condition aggravated [Not Recovered/Not Resolved]
